FAERS Safety Report 9028859 (Version 1)
Quarter: 2013Q1

REPORT INFORMATION
  Report Type: Report from Study
  Country: US (occurrence: US)
  Receive Date: 20130124
  Receipt Date: 20130124
  Transmission Date: 20140127
  Serious: Yes (Hospitalization)
  Sender: FDA-Public Use
  Company Number: US-009507513-1301USA007225

PATIENT
  Age: 46 Year
  Sex: Male
  Weight: 94.8 kg

DRUGS (7)
  1. VORINOSTAT [Suspect]
     Indication: GLIOBLASTOMA MULTIFORME
     Dosage: 300 MG PO ON DAYS 1-5, WEEKLY
     Route: 048
     Dates: start: 20120827
  2. VORINOSTAT [Suspect]
     Dosage: 400 MG PO ON DAYS 1-7 AND 15-21
     Route: 048
  3. VORINOSTAT [Suspect]
     Dosage: 400 MG PO ON DAYS 1-7 AND 15-21
     Route: 048
  4. TEMOZOLOMIDE [Suspect]
     Indication: GLIOBLASTOMA MULTIFORME
     Dosage: 75 MG/M2, QD
     Route: 048
     Dates: start: 20120827
  5. TEMOZOLOMIDE [Suspect]
     Dosage: 150 MG/M2 PO ON DAYS 1-5
     Route: 048
  6. TEMOZOLOMIDE [Suspect]
     Dosage: 200 MG/M2 PO ON DAYS 1-5
     Route: 048
  7. THERAPEUTIC RADIOPHARMACEUTICAL (UNSPECIFIED) [Suspect]
     Indication: GLIOBLASTOMA MULTIFORME
     Dosage: 2 GY/DAY ON DAYS 1-5, WEEKLY
     Dates: start: 20120827

REACTIONS (2)
  - Sialoadenitis [Recovering/Resolving]
  - Localised oedema [Recovering/Resolving]
